FAERS Safety Report 8932672 (Version 1)
Quarter: 2012Q4

REPORT INFORMATION
  Report Type: Spontaneous
  Country: US (occurrence: None)
  Receive Date: 20121126
  Receipt Date: 20121126
  Transmission Date: 20130627
  Serious: Yes (Other)
  Sender: FDA-Public Use
  Company Number: US-JNJFOC-20121008234

PATIENT
  Age: 38 Year
  Sex: Female
  Weight: 61.24 kg

DRUGS (1)
  1. LISTERINE COOLMINT [Suspect]
     Indication: DENTAL DISORDER PROPHYLAXIS
     Dosage: 4 dose(s)
     Route: 048

REACTIONS (6)
  - Drug dependence [None]
  - Intentional drug misuse [None]
  - Therapeutic response unexpected [None]
  - Product quality issue [None]
  - Product quality issue [None]
  - Device breakage [None]
